FAERS Safety Report 13412986 (Version 1)
Quarter: 2017Q2

REPORT INFORMATION
  Report Type: Spontaneous
  Country: JP (occurrence: JP)
  Receive Date: 20170407
  Receipt Date: 20170407
  Transmission Date: 20170830
  Serious: Yes (Death, Hospitalization)
  Sender: FDA-Public Use
  Company Number: JP-BRISTOL-MYERS SQUIBB COMPANY-BMS-2015-045932

PATIENT
  Age: 65 Year
  Sex: Female
  Weight: 45 kg

DRUGS (4)
  1. ERBITUX [Suspect]
     Active Substance: CETUXIMAB
     Dosage: 250 MG, WEEKLY (1/W)
     Route: 042
     Dates: start: 20150623, end: 20150623
  2. ERBITUX [Suspect]
     Active Substance: CETUXIMAB
     Indication: OROPHARYNGEAL CANCER
     Dosage: 400 MG, WEEKLY (1/W)
     Route: 042
     Dates: start: 20150616, end: 20150616
  3. CISPLATIN. [Concomitant]
     Active Substance: CISPLATIN
     Indication: OROPHARYNGEAL CANCER
     Dosage: 80 MG/M2, UNKNOWN
     Route: 042
     Dates: start: 20150716
  4. 5-FLUOROURACIL                     /00098801/ [Concomitant]
     Active Substance: FLUOROURACIL
     Indication: OROPHARYNGEAL CANCER
     Dosage: 800 MG/M2, UNKNOWN
     Route: 042
     Dates: start: 20150616

REACTIONS (3)
  - Metastases to lung [Fatal]
  - General physical health deterioration [Fatal]
  - Interstitial lung disease [Fatal]

NARRATIVE: CASE EVENT DATE: 2015
